FAERS Safety Report 21669297 (Version 1)
Quarter: 2022Q4

REPORT INFORMATION
  Report Type: Spontaneous
  Country: US (occurrence: None)
  Receive Date: 20221201
  Receipt Date: 20221201
  Transmission Date: 20230113
  Serious: No
  Sender: FDA-Public Use
  Company Number: None

PATIENT
  Sex: Male
  Weight: 93 kg

DRUGS (4)
  1. MERCAPTOPURINE [Suspect]
     Active Substance: MERCAPTOPURINE
     Dates: end: 20210418
  2. METHOTREXATE [Suspect]
     Active Substance: METHOTREXATE
     Dates: end: 20210412
  3. PREDNISONE [Suspect]
     Active Substance: PREDNISONE
     Dates: end: 20210409
  4. VINCRISTINE SULFATE [Suspect]
     Active Substance: VINCRISTINE SULFATE
     Dates: end: 20210405

REACTIONS (4)
  - Erythroid dysplasia [None]
  - Sideroblastic anaemia [None]
  - Pancytopenia [None]
  - Chromosome analysis abnormal [None]

NARRATIVE: CASE EVENT DATE: 20210405
